FAERS Safety Report 7047485-2 (Version None)
Quarter: 2010Q4

REPORT INFORMATION
  Report Type: 
  Country: None (occurrence: None)
  Receive Date: 20101014
  Receipt Date: 20101014
  Transmission Date: 20110411
  Serious: Yes (Life-Threatening)
  Sender: FDA-Public Use
  Company Number: None

PATIENT
  Age: 34 Year
  Sex: Male
  Weight: 130 kg

DRUGS (1)
  1. MOXIFLOXACIN [Suspect]
     Indication: BRONCHITIS
     Dosage: 400 MG EVERY DAY PO
     Route: 048
     Dates: start: 20100814, end: 20100913

REACTIONS (1)
  - PHARYNGEAL OEDEMA [None]
